FAERS Safety Report 10687985 (Version 1)
Quarter: 2014Q4

REPORT INFORMATION
  Report Type: Spontaneous
  Country: None (occurrence: None)
  Receive Date: 20141231
  Receipt Date: 20141231
  Transmission Date: 20150529
  Serious: Yes (Other)
  Sender: FDA-Public Use
  Company Number: None

PATIENT
  Age: 36 Year
  Sex: Female
  Weight: 47.63 kg

DRUGS (1)
  1. BACTRIM [Suspect]
     Active Substance: SULFAMETHOXAZOLE\TRIMETHOPRIM
     Indication: ACNE
     Dosage: TWICE DAILY, TAKEN BY MOUTH
     Route: 048

REACTIONS (9)
  - Ocular hyperaemia [None]
  - Chromaturia [None]
  - Dizziness [None]
  - Movement disorder [None]
  - Chest pain [None]
  - Chest discomfort [None]
  - Nausea [None]
  - Renal pain [None]
  - Malaise [None]

NARRATIVE: CASE EVENT DATE: 20141227
